FAERS Safety Report 19856682 (Version 1)
Quarter: 2021Q3

REPORT INFORMATION
  Report Type: Spontaneous
  Country: IN (occurrence: IN)
  Receive Date: 20210920
  Receipt Date: 20210920
  Transmission Date: 20211014
  Serious: Yes (Other)
  Sender: FDA-Public Use
  Company Number: IN-AMGEN-INDSP2021142172

PATIENT
  Sex: Female
  Weight: .5 kg

DRUGS (2)
  1. ROMIPLOSTIM [Suspect]
     Active Substance: ROMIPLOSTIM
     Indication: OFF LABEL USE
  2. ROMIPLOSTIM [Suspect]
     Active Substance: ROMIPLOSTIM
     Indication: THROMBOCYTOPENIA NEONATAL
     Dosage: UNK
     Route: 065

REACTIONS (4)
  - Off label use [Unknown]
  - Amegakaryocytic thrombocytopenia [Unknown]
  - Drug ineffective for unapproved indication [Unknown]
  - Gene mutation [Unknown]
